FAERS Safety Report 23426296 (Version 3)
Quarter: 2024Q4

REPORT INFORMATION
  Report Type: Report from Study
  Country: EG (occurrence: EG)
  Receive Date: 20240122
  Receipt Date: 20241030
  Transmission Date: 20250114
  Serious: Yes (Disabling, Other)
  Sender: NOVARTIS
  Company Number: EG-002147023-NVSC2024EG011943

PATIENT
  Sex: Female
  Weight: 62 kg

DRUGS (8)
  1. GILENYA [Suspect]
     Active Substance: FINGOLIMOD HYDROCHLORIDE
     Indication: Multiple sclerosis
     Dosage: 0.5 MG, QD (ONE CAPSULE ONCE DAILY)
     Route: 048
     Dates: start: 202306
  2. GILENYA [Suspect]
     Active Substance: FINGOLIMOD HYDROCHLORIDE
     Dosage: 0.5 MG, QD (ONE CAPSULE ONCE DAILY)
     Route: 048
  3. TOPAMAX [Concomitant]
     Active Substance: TOPIRAMATE
     Indication: Product used for unknown indication
     Dosage: 25 MG, QD (ONE TABLET ONCE DAILY)
     Route: 048
  4. Methyltechno [Concomitant]
     Indication: Product used for unknown indication
     Dosage: 1 DOSAGE FORM, QD
     Route: 048
  5. Methyltechno [Concomitant]
     Dosage: 1000 UG, QD (ONE TABLET ONCE DAILY)
     Route: 048
  6. TEGRETOL [Concomitant]
     Active Substance: CARBAMAZEPINE
     Indication: Neuralgia
     Dosage: 2 DOSAGE FORM, QD 200 (FROM 3 TO 4 MONTHS UPON HER WORDS)
     Route: 048
  7. TEGRETOL [Concomitant]
     Active Substance: CARBAMAZEPINE
     Indication: Pain
     Dosage: 200 MG, QD (ONE TABLES ONCET DAILY)
     Route: 065
  8. VERSERC [Concomitant]
     Indication: Dizziness
     Dosage: 1 DOSAGE FORM, QD
     Route: 065

REACTIONS (10)
  - Dysuria [Not Recovered/Not Resolved]
  - Full blood count abnormal [Unknown]
  - Blood triglycerides increased [Not Recovered/Not Resolved]
  - Blood cholesterol increased [Unknown]
  - Urinary incontinence [Not Recovered/Not Resolved]
  - Decreased immune responsiveness [Not Recovered/Not Resolved]
  - Haemoglobin decreased [Unknown]
  - Migraine [Not Recovered/Not Resolved]
  - Fibromyalgia [Not Recovered/Not Resolved]
  - Off label use [Unknown]

NARRATIVE: CASE EVENT DATE: 20230101
